FAERS Safety Report 17467144 (Version 1)
Quarter: 2020Q1

REPORT INFORMATION
  Report Type: Spontaneous
  Country: IN (occurrence: IN)
  Receive Date: 20200227
  Receipt Date: 20200227
  Transmission Date: 20200409
  Serious: Yes (Death)
  Sender: FDA-Public Use
  Company Number: IN-ASTRAZENECA-2020SE27780

PATIENT
  Age: 59 Year
  Sex: Male

DRUGS (7)
  1. MET XL [Concomitant]
     Indication: CARDIAC DISORDER
     Dosage: DAILY
     Route: 048
     Dates: start: 20191214, end: 20191219
  2. BRILINTA [Suspect]
     Active Substance: TICAGRELOR
     Indication: CARDIAC DISORDER
     Route: 048
     Dates: start: 20191214, end: 20191219
  3. NITROCONTIN [Concomitant]
     Indication: CARDIAC DISORDER
     Dosage: TWO TIMES A DAY
     Route: 048
     Dates: start: 20191214, end: 20191219
  4. ANCIDOM - DSR [Concomitant]
     Indication: HYPERCHLORHYDRIA
     Dosage: DAILY
     Route: 048
     Dates: start: 20191214, end: 20191219
  5. ATORVA [Concomitant]
     Indication: BLOOD CHOLESTEROL ABNORMAL
     Dosage: DAILY
     Route: 048
     Dates: start: 20191214, end: 20191219
  6. ISORDIL S/L [Concomitant]
     Indication: CARDIAC DISORDER
     Dosage: AS REQUIRED
     Route: 048
     Dates: start: 20191214, end: 20191219
  7. ASPIRIN. [Concomitant]
     Active Substance: ASPIRIN
     Indication: CARDIAC DISORDER
     Dosage: DAILY
     Route: 048
     Dates: start: 20191214, end: 20191219

REACTIONS (1)
  - Myocardial infarction [Fatal]

NARRATIVE: CASE EVENT DATE: 20191219
